FAERS Safety Report 14901263 (Version 1)
Quarter: 2018Q2

REPORT INFORMATION
  Report Type: Spontaneous
  Country: US (occurrence: US)
  Receive Date: 20180516
  Receipt Date: 20180516
  Transmission Date: 20180711
  Serious: No
  Sender: FDA-Public Use
  Company Number: US-PFIZER INC-2018200551

PATIENT
  Age: 73 Year
  Sex: Male
  Weight: 77 kg

DRUGS (2)
  1. ADVIL [Suspect]
     Active Substance: IBUPROFEN
     Dosage: 400 MG, TWICE A DAY (2 AND THEN 2 AT NIGHT)
     Route: 048
     Dates: start: 20180509
  2. PERCOCET [Concomitant]
     Active Substance: ACETAMINOPHEN\OXYCODONE HYDROCHLORIDE
     Dosage: UNK

REACTIONS (7)
  - Throat irritation [Unknown]
  - Foreign body in respiratory tract [Unknown]
  - Product physical issue [Unknown]
  - Pyrexia [Unknown]
  - Tongue discomfort [Unknown]
  - Oral discomfort [Unknown]
  - Oral mucosal blistering [Unknown]
